FAERS Safety Report 4949725-X (Version None)
Quarter: 2006Q1

REPORT INFORMATION
  Report Type: 
  Country: None (occurrence: None)
  Receive Date: 20060321
  Receipt Date: 20030716
  Transmission Date: 20060701
  Serious: Yes (Hospitalization, Disabling, Other)
  Sender: FDA-Public Use
  Company Number: US-MERCK-0307USA02048

PATIENT
  Age: 46 Year
  Sex: Male
  Weight: 100 kg

DRUGS (8)
  1. VIOXX [Suspect]
     Indication: BACK PAIN
     Route: 048
     Dates: start: 20010901, end: 20020328
  2. ADVIL [Concomitant]
     Route: 065
  3. SOMA [Concomitant]
     Route: 065
  4. PERCOCET [Suspect]
     Route: 065
  5. XANAX [Suspect]
     Route: 065
  6. AMBIEN [Suspect]
     Route: 065
  7. ALCOHOL [Suspect]
     Route: 065
  8. IMDUR [Concomitant]
     Route: 065
     Dates: end: 20021109

REACTIONS (25)
  - ACUTE MYOCARDIAL INFARCTION [None]
  - ARTHROPOD STING [None]
  - CARDIAC FAILURE [None]
  - CARDIOMYOPATHY [None]
  - CAROTID ARTERY STENOSIS [None]
  - CHEST PAIN [None]
  - CORONARY ARTERY DISEASE [None]
  - CORONARY ARTERY OCCLUSION [None]
  - DIABETES MELLITUS [None]
  - DRUG HYPERSENSITIVITY [None]
  - GASTROOESOPHAGEAL REFLUX DISEASE [None]
  - HYPERCHOLESTEROLAEMIA [None]
  - HYPERLIPIDAEMIA [None]
  - HYPERTENSION [None]
  - HYPOAESTHESIA [None]
  - HYPONATRAEMIA [None]
  - INTENTIONAL OVERDOSE [None]
  - MAJOR DEPRESSION [None]
  - MYOCARDIAL INFARCTION [None]
  - SPONDYLITIS [None]
  - STENT OCCLUSION [None]
  - SUICIDE ATTEMPT [None]
  - SWELLING FACE [None]
  - SYNCOPE [None]
  - TOOTH DISORDER [None]
